FAERS Safety Report 17015289 (Version 1)
Quarter: 2019Q4

REPORT INFORMATION
  Report Type: Spontaneous
  Country: GB (occurrence: GB)
  Receive Date: 20191111
  Receipt Date: 20191111
  Transmission Date: 20200122
  Serious: Yes (Hospitalization, Other)
  Sender: FDA-Public Use
  Company Number: GB-TEVA-2019-GB-1135755

PATIENT
  Age: 23 Year
  Sex: Female
  Weight: 77.56 kg

DRUGS (6)
  1. PARACETAMOL COATED 90% [Concomitant]
  2. CODEINE [Concomitant]
     Active Substance: CODEINE
  3. ORAMORPH [Concomitant]
     Active Substance: MORPHINE SULFATE
  4. OMEPRAZOLE. [Concomitant]
     Active Substance: OMEPRAZOLE
  5. IBROFEN [Concomitant]
  6. METRONIDAZOLE. [Suspect]
     Active Substance: METRONIDAZOLE
     Indication: TOOTH INFECTION
     Dosage: 3 DOSAGEFORM
     Route: 048
     Dates: start: 20190828, end: 20190903

REACTIONS (2)
  - Pancreatitis [Not Recovered/Not Resolved]
  - Inflammation [Recovering/Resolving]

NARRATIVE: CASE EVENT DATE: 20190902
